FAERS Safety Report 24204155 (Version 3)
Quarter: 2024Q3

REPORT INFORMATION
  Report Type: Spontaneous
  Country: US (occurrence: US)
  Receive Date: 20240813
  Receipt Date: 20240827
  Transmission Date: 20241017
  Serious: No
  Sender: Haleon PLC
  Company Number: US-HALEON-2191703

PATIENT
  Sex: Female

DRUGS (1)
  1. ADVIL [Suspect]
     Active Substance: IBUPROFEN\IBUPROFEN SODIUM
     Indication: Pain
     Dosage: , LIQUID GELCAP; EXP 04/26.
     Dates: start: 20240811, end: 20240812

REACTIONS (2)
  - Drug ineffective [Unknown]
  - Product complaint [Unknown]
